APPROVED DRUG PRODUCT: URSODIOL
Active Ingredient: URSODIOL
Strength: 250MG
Dosage Form/Route: TABLET;ORAL
Application: A214717 | Product #001 | TE Code: AB
Applicant: EPIC PHARMA LLC
Approved: Aug 14, 2024 | RLD: No | RS: No | Type: RX